FAERS Safety Report 7678282-2 (Version None)
Quarter: 2011Q3

REPORT INFORMATION
  Report Type: 
  Country: None (occurrence: None)
  Receive Date: 20110811
  Receipt Date: 20110801
  Transmission Date: 20111222
  Serious: Yes (Other)
  Sender: FDA-Public Use
  Company Number: PHHY2011DE69790

PATIENT
  Sex: Male

DRUGS (9)
  1. ONBREZ [Suspect]
     Dosage: 300 UG, QD
     Dates: start: 20110101
  2. CARVEDILOL [Concomitant]
     Dosage: 1 DF, BID
  3. TORSEMIDE [Concomitant]
     Dosage: 0.5 DF, QD
  4. SPIRIVA [Concomitant]
  5. ONBREZ [Suspect]
     Dosage: 150 UG, QD
  6. BUDIAIR [Concomitant]
  7. INSPRA [Concomitant]
     Dosage: 1 DF, QD
  8. PROCORALAN [Concomitant]
     Dosage: 1.5 DF, QD
  9. CANDESARTAN CILEXETIL [Concomitant]
     Dosage: 1 DF, QD

REACTIONS (2)
  - GAMMA-GLUTAMYLTRANSFERASE INCREASED [None]
  - ALANINE AMINOTRANSFERASE INCREASED [None]
